FAERS Safety Report 10204155 (Version 1)
Quarter: 2014Q2

REPORT INFORMATION
  Report Type: Report from Study
  Country: TW (occurrence: TW)
  Receive Date: 20140529
  Receipt Date: 20140529
  Transmission Date: 20141212
  Serious: Yes (Hospitalization)
  Sender: FDA-Public Use
  Company Number: TW-SA-2014SA069494

PATIENT
  Age: 47 Day
  Sex: Male
  Weight: 4.36 kg

DRUGS (2)
  1. MYOZYME [Suspect]
     Indication: GLYCOGEN STORAGE DISEASE TYPE II
     Route: 042
  2. MYOZYME [Suspect]
     Indication: GLYCOGEN STORAGE DISEASE TYPE II
     Route: 042

REACTIONS (4)
  - Haematochezia [Recovered/Resolved]
  - Milk allergy [Recovered/Resolved]
  - Hand-foot-and-mouth disease [Recovered/Resolved]
  - Urticaria [Recovered/Resolved]
